FAERS Safety Report 25330073 (Version 2)
Quarter: 2025Q2

REPORT INFORMATION
  Report Type: Spontaneous
  Country: US (occurrence: US)
  Receive Date: 20250519
  Receipt Date: 20250604
  Transmission Date: 20250717
  Serious: Yes (Hospitalization, Other)
  Sender: TAKEDA
  Company Number: US-TAKEDA-2025TUS046328

PATIENT
  Age: 74 Year
  Sex: Male
  Weight: 75 kg

DRUGS (4)
  1. GAMMAGARD LIQUID [Suspect]
     Active Substance: HUMAN IMMUNOGLOBULIN G
     Indication: Hypogammaglobulinaemia
     Dosage: UNK UNK, MONTHLY
     Dates: start: 20220612, end: 20241013
  2. GAMMAGARD LIQUID [Suspect]
     Active Substance: HUMAN IMMUNOGLOBULIN G
     Dosage: UNK UNK, MONTHLY
     Dates: start: 20241124, end: 20250511
  3. ACYCLOVIR [Concomitant]
     Active Substance: ACYCLOVIR
     Indication: Antiviral prophylaxis
     Dosage: 800 MILLIGRAM, QD
  4. VEETIDS [Concomitant]
     Active Substance: PENICILLIN V POTASSIUM
     Indication: Antibiotic prophylaxis
     Dosage: 500 GRAM, BID

REACTIONS (1)
  - Transfusion-related acute lung injury [Recovered/Resolved]

NARRATIVE: CASE EVENT DATE: 20250511
